FAERS Safety Report 10324954 (Version 2)
Quarter: 2015Q1

REPORT INFORMATION
  Report Type: Other
  Country: US (occurrence: US)
  Receive Date: 20140720
  Receipt Date: 20150319
  Transmission Date: 20150720
  Serious: Yes (Hospitalization, Other)
  Sender: FDA-Public Use
  Company Number: US-GSKPPD-2014GSK039730

PATIENT
  Age: 56 Year
  Sex: Male

DRUGS (5)
  1. NITRO-STAT [Concomitant]
     Route: 060
  2. AVANDIA [Suspect]
     Active Substance: ROSIGLITAZONE MALEATE
     Indication: DIABETES MELLITUS
     Route: 048
     Dates: start: 20041016
  3. NITRO-DUR [Concomitant]
     Active Substance: NITROGLYCERIN
  4. ASPIRIN EC [Concomitant]
     Active Substance: ASPIRIN
     Route: 048
  5. VASOTEC [Concomitant]
     Active Substance: ENALAPRIL MALEATE
     Route: 048

REACTIONS (1)
  - Cardiac failure congestive [Recovered/Resolved]

NARRATIVE: CASE EVENT DATE: 20041016
